FAERS Safety Report 5229867-4 (Version None)
Quarter: 2007Q1

REPORT INFORMATION
  Report Type: 
  Country: None (occurrence: None)
  Receive Date: 20070206
  Receipt Date: 20060807
  Transmission Date: 20070707
  Serious: No
  Sender: FDA-Public Use
  Company Number: US-GLAXOSMITHKLINE-A0584988A

PATIENT
  Age: 47 Year
  Sex: Female

DRUGS (4)
  1. PAXIL [Suspect]
     Indication: DEPRESSION
     Dosage: 60MG PER DAY
     Route: 048
     Dates: start: 20060101, end: 20060701
  2. PAXIL CR [Suspect]
     Indication: DEPRESSION
     Dosage: 75MG AT NIGHT
     Route: 048
     Dates: start: 20051230
  3. PAROXETINE HYDROCHLORIDE [Suspect]
     Indication: DEPRESSION
     Route: 048
     Dates: start: 20051001, end: 20060101
  4. NO CONCURRENT MEDICATION [Concomitant]

REACTIONS (3)
  - DRUG INEFFECTIVE [None]
  - NIGHT SWEATS [None]
  - THERAPEUTIC RESPONSE DECREASED [None]
